FAERS Safety Report 18943315 (Version 1)
Quarter: 2021Q1

REPORT INFORMATION
  Report Type: Spontaneous
  Country: US (occurrence: US)
  Receive Date: 20210226
  Receipt Date: 20210226
  Transmission Date: 20210420
  Serious: No
  Sender: FDA-Public Use
  Company Number: US-TEVA-2021-US-1884428

PATIENT
  Sex: Female

DRUGS (1)
  1. DESVENLAFAXINE. [Suspect]
     Active Substance: DESVENLAFAXINE
     Indication: ANTIDEPRESSANT THERAPY
     Dosage: START DATE: FOR NEARLY 18 YEARS
     Route: 065

REACTIONS (2)
  - Feeling abnormal [Unknown]
  - Withdrawal syndrome [Unknown]
